FAERS Safety Report 9415404 (Version 1)
Quarter: 2013Q3

REPORT INFORMATION
  Report Type: Spontaneous
  Country: US (occurrence: US)
  Receive Date: 20130723
  Receipt Date: 20130723
  Transmission Date: 20140515
  Serious: No
  Sender: FDA-Public Use
  Company Number: US-PFIZER INC-2013212164

PATIENT
  Age: 65 Year
  Sex: Male

DRUGS (2)
  1. INLYTA [Suspect]
     Indication: MALIGNANT NEOPLASM OF RENAL PELVIS
     Dosage: 5 MG, 2X/DAY (1 (5MG) TABLET 2X/DAY FOR 2 WEEKS)
     Dates: start: 20130409
  2. INLYTA [Suspect]
     Dosage: 7 MG, 2X/DAY (TAKE 1 (5MG) TABLET WITH 2 (1MG) TABLETS 2X/DAY)

REACTIONS (2)
  - Disease progression [Unknown]
  - Malignant neoplasm of renal pelvis [Unknown]
